FAERS Safety Report 6185011-0 (Version None)
Quarter: 2009Q2

REPORT INFORMATION
  Report Type: 
  Country: None (occurrence: None)
  Receive Date: 20090511
  Receipt Date: 20090326
  Transmission Date: 20091009
  Serious: No
  Sender: FDA-Public Use
  Company Number: A0775652A

PATIENT
  Age: 65 Year
  Sex: Female

DRUGS (2)
  1. COREG CR [Suspect]
     Dosage: 10MG PER DAY
     Route: 048
     Dates: start: 20090324
  2. NO CONCURRENT MEDICATION [Concomitant]

REACTIONS (6)
  - ABDOMINAL PAIN UPPER [None]
  - BLOOD GLUCOSE INCREASED [None]
  - CRYING [None]
  - INSOMNIA [None]
  - MYALGIA [None]
  - NAUSEA [None]
